FAERS Safety Report 25009045 (Version 1)
Quarter: 2025Q1

REPORT INFORMATION
  Report Type: Spontaneous
  Country: US (occurrence: None)
  Receive Date: 20250225
  Receipt Date: 20250225
  Transmission Date: 20250408
  Serious: Yes (unspecified)
  Sender: FDA-CTU
  Company Number: None

PATIENT
  Age: 79 Year
  Sex: Female

DRUGS (1)
  1. MOMELOTINIB [Suspect]
     Active Substance: MOMELOTINIB
     Indication: Myelofibrosis
     Dosage: FREQUENCY : DAILY;?
     Route: 048
     Dates: start: 20250203, end: 20250212

REACTIONS (4)
  - Product formulation issue [None]
  - Diarrhoea [None]
  - Abdominal discomfort [None]
  - Abdominal pain [None]

NARRATIVE: CASE EVENT DATE: 20250212
